FAERS Safety Report 24524546 (Version 1)
Quarter: 2024Q4

REPORT INFORMATION
  Report Type: Report from Study
  Country: CA (occurrence: CA)
  Receive Date: 20241019
  Receipt Date: 20241019
  Transmission Date: 20250114
  Serious: Yes (Hospitalization, Other)
  Sender: ABBVIE
  Company Number: CA-ABBVIE-5931078

PATIENT
  Age: 55 Year
  Sex: Female
  Weight: 158 kg

DRUGS (1)
  1. GLECAPREVIR\PIBRENTASVIR [Suspect]
     Active Substance: GLECAPREVIR\PIBRENTASVIR
     Indication: Chronic hepatitis C
     Dosage: TIME INTERVAL: 0.33333333 DAYS: 100/40 MG
     Route: 048
     Dates: start: 20240227, end: 20240504

REACTIONS (6)
  - Hospitalisation [Recovered/Resolved]
  - Segmental diverticular colitis [Unknown]
  - Faecaloma [Unknown]
  - Lower gastrointestinal haemorrhage [Unknown]
  - Colitis ischaemic [Unknown]
  - Constipation [Unknown]

NARRATIVE: CASE EVENT DATE: 20240101
